FAERS Safety Report 5515699-6 (Version None)
Quarter: 2007Q4

REPORT INFORMATION
  Report Type: 
  Country: None (occurrence: None)
  Receive Date: 20071113
  Receipt Date: 20070830
  Transmission Date: 20080405
  Serious: No
  Sender: FDA-Public Use
  Company Number: A0677746A

PATIENT
  Age: 75 Year
  Sex: Male

DRUGS (7)
  1. COREG [Suspect]
     Indication: HYPERTENSION
     Dosage: 25MG TWICE PER DAY
     Route: 048
     Dates: start: 20050601
  2. LANOXIN [Concomitant]
  3. DIGOXIN [Concomitant]
  4. SIMVASTATIN [Concomitant]
  5. HYDROCHLOROTHIAZIDE [Concomitant]
  6. COUMADIN [Concomitant]
  7. LISINOPRIL [Concomitant]

REACTIONS (3)
  - HEARING IMPAIRED [None]
  - VISION BLURRED [None]
  - VISUAL DISTURBANCE [None]
